FAERS Safety Report 4809775-0 (Version None)
Quarter: 2005Q4

REPORT INFORMATION
  Report Type: 
  Country: None (occurrence: None)
  Receive Date: 20051024
  Receipt Date: 20051017
  Transmission Date: 20060501
  Serious: Yes (Hospitalization)
  Sender: FDA-Public Use
  Company Number: 143248USA

PATIENT
  Age: 49 Year
  Sex: Male
  Weight: 147.419 kg

DRUGS (6)
  1. OXYCODONE [Suspect]
     Indication: ARTHROPATHY
     Dosage: 80 MILLIGRAM ORAL
     Route: 048
     Dates: start: 20040701, end: 20040801
  2. OXYCODONE [Suspect]
     Indication: BACK DISORDER
     Dosage: 80 MILLIGRAM ORAL
     Route: 048
     Dates: start: 20040701, end: 20040801
  3. OXYCODONE [Suspect]
     Indication: FIBROMYALGIA
     Dosage: 80 MILLIGRAM ORAL
     Route: 048
     Dates: start: 20040701, end: 20040801
  4. LORTAB [Concomitant]
  5. VALIUM [Concomitant]
  6. INSULIN [Concomitant]

REACTIONS (3)
  - ANAPHYLACTIC REACTION [None]
  - DRUG INEFFECTIVE [None]
  - THERAPEUTIC RESPONSE UNEXPECTED WITH DRUG SUBSTITUTION [None]
